FAERS Safety Report 5502171-2 (Version None)
Quarter: 2007Q4

REPORT INFORMATION
  Report Type: 
  Country: None (occurrence: None)
  Receive Date: 20071030
  Receipt Date: 20071023
  Transmission Date: 20080405
  Serious: Yes (Other)
  Sender: FDA-Public Use
  Company Number: DE-ASTRAZENECA-2007PK02184

PATIENT
  Age: 70 Year
  Sex: Female

DRUGS (1)
  1. ATACAND HCT [Suspect]
     Dosage: 8/12.5 MG
     Route: 048
     Dates: start: 20040101, end: 20070101

REACTIONS (2)
  - HEPATOMEGALY [None]
  - VISUAL DISTURBANCE [None]
